FAERS Safety Report 20231669 (Version 1)
Quarter: 2021Q4

REPORT INFORMATION
  Report Type: Spontaneous
  Country: US (occurrence: US)
  Receive Date: 20211227
  Receipt Date: 20211227
  Transmission Date: 20220303
  Serious: No
  Sender: FDA-Public Use
  Company Number: US-AVEO ONCOLOGY-2021-AVEO-US003602

PATIENT

DRUGS (9)
  1. FOTIVDA [Suspect]
     Active Substance: TIVOZANIB HYDROCHLORIDE
     Indication: Renal cell carcinoma
     Dosage: 1.34 MG, DAILY,TAKE 1.34MG CAP PO QD X 21D ON THEN 7D OFF UD
     Route: 048
     Dates: start: 20210720
  2. VITAMIN C [Concomitant]
     Active Substance: ASCORBIC ACID
  3. NORVASC [Concomitant]
     Active Substance: AMLODIPINE BESYLATE
  4. PRAVACHOL [Concomitant]
     Active Substance: PRAVASTATIN SODIUM
  5. VITAMIN D [Concomitant]
     Active Substance: VITAMIN D NOS
  6. PRILOSEC [Concomitant]
     Active Substance: OMEPRAZOLE MAGNESIUM
  7. LISINOPRIL [Concomitant]
     Active Substance: LISINOPRIL
  8. FISH OIL [Concomitant]
     Active Substance: FISH OIL
  9. VITAMINS [Concomitant]
     Active Substance: VITAMINS

REACTIONS (1)
  - Product use issue [Unknown]
